FAERS Safety Report 6183528-6 (Version None)
Quarter: 2009Q2

REPORT INFORMATION
  Report Type: 
  Country: None (occurrence: None)
  Receive Date: 20090506
  Receipt Date: 20090430
  Transmission Date: 20091009
  Serious: Yes (Other)
  Sender: FDA-Public Use
  Company Number: 193424USA

PATIENT
  Sex: Male

DRUGS (1)
  1. CLARAVIS [Suspect]
     Indication: ACNE
     Dosage: 40 MG EVERY OTHER DAY, ALTERNATING WITH 80 MG EVERY OTHER DAY, ORAL
     Route: 048
     Dates: start: 20080708, end: 20090101

REACTIONS (1)
  - PREGNANCY OF PARTNER [None]
